FAERS Safety Report 12689106 (Version 2)
Quarter: 2016Q3

REPORT INFORMATION
  Report Type: Spontaneous
  Country: TW (occurrence: TW)
  Receive Date: 20160826
  Receipt Date: 20160928
  Transmission Date: 20161109
  Serious: Yes (Death, Other)
  Sender: FDA-Public Use
  Company Number: TW-CIPLA LTD.-2016TW17491

PATIENT

DRUGS (15)
  1. ETANERCEPT [Suspect]
     Active Substance: ETANERCEPT
     Indication: PNEUMONIA
     Dosage: UNK (A TOTAL OF 7 DOSES FROM DAYS +44 TO +69)
     Route: 065
  2. CYCLOPHOSPHAMIDE. [Suspect]
     Active Substance: CYCLOPHOSPHAMIDE
     Indication: HODGKIN^S DISEASE
     Dosage: 14.5 MG/KG, DAILY, FROM -6 TO -5
     Route: 042
  3. MELPHALAN [Suspect]
     Active Substance: MELPHALAN
     Indication: HODGKIN^S DISEASE
     Dosage: UNK
     Route: 065
  4. MYCOPHENOLATE MOFETIL. [Suspect]
     Active Substance: MYCOPHENOLATE MOFETIL
     Indication: HODGKIN^S DISEASE
     Dosage: UNK, FROM +5
     Route: 065
  5. ETOPOSIDE. [Suspect]
     Active Substance: ETOPOSIDE
     Indication: HODGKIN^S DISEASE
     Dosage: UNK
     Route: 065
  6. VINORELBINE [Suspect]
     Active Substance: VINORELBINE\VINORELBINE TARTRATE
     Indication: HODGKIN^S DISEASE
     Dosage: UNK, 3 CYCLES
     Route: 065
     Dates: start: 201407, end: 201409
  7. CYTARABINE. [Suspect]
     Active Substance: CYTARABINE
     Indication: HODGKIN^S DISEASE
     Dosage: UNK
     Route: 065
  8. CYCLOSPORINE. [Suspect]
     Active Substance: CYCLOSPORINE
     Indication: HODGKIN^S DISEASE
     Dosage: UNK, FROM DAY +5
     Route: 065
  9. GEMCITABINE [Suspect]
     Active Substance: GEMCITABINE\GEMCITABINE HYDROCHLORIDE
     Indication: HODGKIN^S DISEASE
     Dosage: UNK, 3 CYCLES
     Route: 065
     Dates: start: 201407, end: 201409
  10. METHYLPREDNISOLONE. [Suspect]
     Active Substance: METHYLPREDNISOLONE
     Indication: PNEUMONIA
     Dosage: UNK
     Route: 065
  11. CYCLOPHOSPHAMIDE. [Suspect]
     Active Substance: CYCLOPHOSPHAMIDE
     Dosage: 50 MG/KG,DAILY FROM FROM DAY +3 TO +4
     Route: 042
  12. FLUDARABINE [Suspect]
     Active Substance: FLUDARABINE PHOSPHATE
     Indication: HODGKIN^S DISEASE
     Dosage: 30 MG/M2, DAILY, FROM DAY -6 TO -2
     Route: 042
  13. BICNU [Suspect]
     Active Substance: CARMUSTINE
     Indication: HODGKIN^S DISEASE
     Dosage: UNK
     Route: 065
  14. GANCICLOVIR. [Suspect]
     Active Substance: GANCICLOVIR
     Indication: CYTOMEGALOVIRUS INFECTION
     Dosage: UNK, FROM DAY +36
     Route: 065
  15. IMMUNOGLOBULINS [Suspect]
     Active Substance: HUMAN IMMUNOGLOBULIN G
     Indication: CYTOMEGALOVIRUS INFECTION
     Dosage: UNK, TOTAL OF 7 DOSES FROM DAY +37 TO DAY +69
     Route: 042

REACTIONS (15)
  - Death [Fatal]
  - Thrombotic microangiopathy [Unknown]
  - Cytomegalovirus infection [Recovered/Resolved]
  - Disease recurrence [Unknown]
  - Respiratory distress [Unknown]
  - Pericardial effusion [Unknown]
  - Hypertension [Unknown]
  - Disease progression [Unknown]
  - Idiopathic pneumonia syndrome [Recovering/Resolving]
  - Pleural effusion [Unknown]
  - Complex partial seizures [Unknown]
  - Human polyomavirus infection [Unknown]
  - Renal impairment [Unknown]
  - Cystitis haemorrhagic [Unknown]
  - Hypercalcaemia [Unknown]
